FAERS Safety Report 8115749-7 (Version None)
Quarter: 2012Q1

REPORT INFORMATION
  Report Type: 
  Country: None (occurrence: None)
  Receive Date: 20120206
  Receipt Date: 20120123
  Transmission Date: 20120608
  Serious: Yes (Other)
  Sender: FDA-Public Use
  Company Number: NL-ROCHE-1034595

PATIENT
  Age: 54 Year
  Sex: Male

DRUGS (7)
  1. PEGINTERFERON ALFA-2A [Suspect]
     Dosage: SECOND TREATMENT COURSE
  2. PEGINTERFERON ALFA-2A [Suspect]
     Dates: start: 20070501
  3. COPEGUS [Suspect]
     Dates: start: 20070501
  4. TELAPREVIR [Suspect]
     Indication: HEPATITIS C
     Dates: start: 20070501
  5. PEGINTERFERON ALFA-2A [Suspect]
     Indication: HEPATITIS C
     Dosage: FIRST TREATMENT COURSE
  6. COPEGUS [Suspect]
     Indication: HEPATITIS C
     Dosage: FIRST TREATMENT COURSE
  7. COPEGUS [Suspect]
     Dosage: SECOND TREATMENT COURSE

REACTIONS (3)
  - PLATELET COUNT DECREASED [None]
  - GAMMA-GLUTAMYLTRANSFERASE INCREASED [None]
  - BILIRUBIN CONJUGATED INCREASED [None]
